FAERS Safety Report 20144606 (Version 1)
Quarter: 2021Q4

REPORT INFORMATION
  Report Type: Spontaneous
  Country: US (occurrence: US)
  Receive Date: 20211203
  Receipt Date: 20211203
  Transmission Date: 20220303
  Serious: Yes (Other)
  Sender: FDA-Public Use
  Company Number: US-GLAXOSMITHKLINE-US2021GSK247637

PATIENT
  Sex: Female

DRUGS (5)
  1. RANITIDINE [Suspect]
     Active Substance: RANITIDINE
     Indication: Dysphagia
     Dosage: 300 MG, QD
     Route: 065
     Dates: start: 201309, end: 202010
  2. ZANTAC [Suspect]
     Active Substance: RANITIDINE HYDROCHLORIDE
     Indication: Dysphagia
     Dosage: 300 MG, QD
     Route: 065
     Dates: start: 201309, end: 202010
  3. ZANTAC [Suspect]
     Active Substance: RANITIDINE HYDROCHLORIDE
     Indication: Dysphagia
     Dosage: UNK UNK, QD
     Route: 065
     Dates: start: 201309, end: 202010
  4. RANITIDINE [Suspect]
     Active Substance: RANITIDINE
     Indication: Dysphagia
     Dosage: 300 MG, QD
     Route: 065
     Dates: start: 201309, end: 202010
  5. ZANTAC [Suspect]
     Active Substance: RANITIDINE HYDROCHLORIDE
     Indication: Dysphagia
     Dosage: 300 MG, QD
     Route: 065
     Dates: start: 201309, end: 202010

REACTIONS (1)
  - Breast cancer [Unknown]
